FAERS Safety Report 7958672-0 (Version None)
Quarter: 2011Q4

REPORT INFORMATION
  Report Type: 
  Country: None (occurrence: None)
  Receive Date: 20111206
  Receipt Date: 20111130
  Transmission Date: 20120403
  Serious: Yes (Hospitalization)
  Sender: FDA-Public Use
  Company Number: PL-BRISTOL-MYERS SQUIBB COMPANY-14516967

PATIENT
  Age: 53 Year
  Sex: Male
  Weight: 86 kg

DRUGS (11)
  1. RANITIDINE [Concomitant]
     Indication: PREMEDICATION
     Dates: start: 20090105, end: 20090105
  2. ONDANSETRON [Concomitant]
     Indication: PROPHYLAXIS OF NAUSEA AND VOMITING
     Dates: start: 20090105, end: 20090105
  3. SALINE [Concomitant]
     Indication: CHEMOTHERAPY
     Dates: start: 20090105, end: 20090105
  4. CARBOPLATIN [Suspect]
     Indication: NON-SMALL CELL LUNG CANCER
     Dosage: FORMULATION-SOLUTION STOPPED12DEC08 RESTARTED:05JAN09
     Route: 042
     Dates: start: 20081212
  5. DIPHERGAN [Concomitant]
     Indication: PREMEDICATION
     Dates: start: 20090105, end: 20090105
  6. ACETAMINOPHEN [Concomitant]
     Indication: PREMEDICATION
     Dates: start: 20090105, end: 20090105
  7. AVASTIN [Suspect]
     Indication: NON-SMALL CELL LUNG CANCER
     Dosage: FORMULATION-SOLUTION12DEC2008 RESTARETD:05JAN09.UNK
     Route: 042
     Dates: start: 20081212
  8. DEXAMETHASONE [Concomitant]
     Indication: PREMEDICATION
     Dates: start: 20090105, end: 20090105
  9. PACLITAXEL [Suspect]
     Indication: NON-SMALL CELL LUNG CANCER
     Dosage: FORMULATION-SOLUTION STOPPED:12DEC08 RESTARTED:05JAN09.
     Route: 042
     Dates: start: 20081212
  10. METOCLOPRAMIDE [Concomitant]
     Indication: PROPHYLAXIS OF NAUSEA AND VOMITING
     Dates: start: 20090105, end: 20090105
  11. DARBEPOETIN ALFA [Concomitant]
     Indication: ANAEMIA
     Dates: start: 20090105, end: 20090105

REACTIONS (1)
  - DEEP VEIN THROMBOSIS [None]
